FAERS Safety Report 20789645 (Version 1)
Quarter: 2022Q2

REPORT INFORMATION
  Report Type: Spontaneous
  Country: US (occurrence: None)
  Receive Date: 20220504
  Receipt Date: 20220504
  Transmission Date: 20220721
  Serious: Yes (Hospitalization)
  Sender: FDA-Public Use
  Company Number: None

PATIENT
  Age: 67 Year
  Sex: Female

DRUGS (1)
  1. HUMIRA [Suspect]
     Active Substance: ADALIMUMAB
     Indication: Crohn^s disease
     Route: 058
     Dates: start: 20210801

REACTIONS (5)
  - Heart rate decreased [None]
  - Hypertension [None]
  - Hepatic failure [None]
  - Renal impairment [None]
  - Therapy interrupted [None]

NARRATIVE: CASE EVENT DATE: 20220426
